FAERS Safety Report 5066159-0 (Version None)
Quarter: 2006Q3

REPORT INFORMATION
  Report Type: 
  Country: None (occurrence: None)
  Receive Date: 20060725
  Receipt Date: 20060705
  Transmission Date: 20061208
  Serious: Yes (Hospitalization, Disabling)
  Sender: FDA-Public Use
  Company Number: FR200607000506

PATIENT
  Age: 50 Year
  Sex: Male

DRUGS (1)
  1. GEMZAR [Suspect]
     Indication: BLADDER CANCER
     Dosage: INTRAVENOUS
     Route: 042
     Dates: start: 20060220

REACTIONS (2)
  - GANGRENE [None]
  - LEG AMPUTATION [None]
